FAERS Safety Report 15578652 (Version 2)
Quarter: 2018Q4

REPORT INFORMATION
  Report Type: Report from Study
  Country: SG (occurrence: SG)
  Receive Date: 20181102
  Receipt Date: 20181123
  Transmission Date: 20190205
  Serious: Yes (Hospitalization)
  Sender: FDA-Public Use
  Company Number: SG-ROCHE-2127848

PATIENT
  Age: 75 Year
  Sex: Female

DRUGS (2)
  1. BEVACIZUMAB. [Suspect]
     Active Substance: BEVACIZUMAB
     Indication: LUNG NEOPLASM MALIGNANT
     Dosage: BEVACIZUMAB IS ADMINISTERED AT 15MG/KG INTRAVENOUSLY ON DAY 1 OF EVERY 3-WEEK CYCLE AS PER PROTOCOL.
     Route: 042
     Dates: start: 20180502
  2. OSIMERTINIB. [Suspect]
     Active Substance: OSIMERTINIB
     Indication: LUNG NEOPLASM MALIGNANT
     Dosage: PER REPLY FROM PATIENT^S NEXT-OF-KIN, SUBJECT MISSED?DOSE ON 19/05 BUT RESUMED ON 20/05.
     Route: 042
     Dates: start: 20180502, end: 20180518

REACTIONS (2)
  - Pyrexia [Recovered/Resolved]
  - Lung infection [Unknown]

NARRATIVE: CASE EVENT DATE: 20180519
